FAERS Safety Report 12549013 (Version 1)
Quarter: 2016Q3

REPORT INFORMATION
  Report Type: Spontaneous
  Country: US (occurrence: US)
  Receive Date: 20160712
  Receipt Date: 20160712
  Transmission Date: 20161109
  Serious: No
  Sender: FDA-Public Use
  Company Number: US-ELI_LILLY_AND_COMPANY-US201606008381

PATIENT
  Sex: Male

DRUGS (2)
  1. CIALIS [Suspect]
     Active Substance: TADALAFIL
     Indication: ERECTILE DYSFUNCTION
     Dosage: 5 MG, QD
     Route: 065
     Dates: start: 2014
  2. CIALIS [Suspect]
     Active Substance: TADALAFIL
     Dosage: 5 MG, 3 TIMES EVERY WEEK
     Route: 065
     Dates: start: 2015

REACTIONS (5)
  - Gingival recession [Unknown]
  - Dizziness [Unknown]
  - Inappropriate schedule of drug administration [Not Recovered/Not Resolved]
  - Glycosylated haemoglobin increased [Recovered/Resolved]
  - Back pain [Unknown]
